FAERS Safety Report 21802641 (Version 1)
Quarter: 2022Q4

REPORT INFORMATION
  Report Type: Spontaneous
  Country: CA (occurrence: CA)
  Receive Date: 20221231
  Receipt Date: 20221231
  Transmission Date: 20230112
  Serious: Yes (Hospitalization)
  Sender: FDA-Public Use
  Company Number: None

PATIENT
  Age: 47 Year
  Sex: Male
  Weight: 89 kg

DRUGS (24)
  1. FLUOROURACIL [Suspect]
     Active Substance: FLUOROURACIL
     Indication: Gastric cancer
  2. IRINOTECAN [Suspect]
     Active Substance: IRINOTECAN
     Indication: Gastric cancer
     Dosage: SOLUTION INTRAVENOUS, FREQUENCY: CYCLICAL
  3. LEUCOVORIN [Suspect]
     Active Substance: LEUCOVORIN
     Indication: Gastric cancer
     Dosage: FREQUENCY: CYCLICAL
  4. TRASTUZUMAB [Suspect]
     Active Substance: TRASTUZUMAB
     Indication: Gastric cancer
     Dosage: FREQUENCY: CYCLICAL
  5. ZOLEDRONIC ACID [Concomitant]
     Active Substance: ZOLEDRONIC ACID
  6. ACETAMINOPHEN [Concomitant]
     Active Substance: ACETAMINOPHEN
  7. ARGATROBAN [Concomitant]
     Active Substance: ARGATROBAN
     Dosage: SOLUTION INTRAVENOUS
  8. ATROPINE [Concomitant]
     Active Substance: ATROPINE
  9. CIPROFLOXACIN [Concomitant]
     Active Substance: CIPROFLOXACIN
  10. DEXAMETHASONE [Concomitant]
     Active Substance: DEXAMETHASONE
     Dosage: LIQUID INTRAA-RTICULAR
  11. DICLOFENAC [Concomitant]
     Active Substance: DICLOFENAC
  12. ENOXAPARIN [Concomitant]
     Active Substance: ENOXAPARIN
  13. FUROSEMIDE [Concomitant]
     Active Substance: FUROSEMIDE
  14. HEPARIN SODIUM [Concomitant]
     Active Substance: HEPARIN SODIUM
     Dosage: SOLUTION INTRAVENOUS
  15. HYDROMORPHONE [Concomitant]
     Active Substance: HYDROMORPHONE
  16. LOPERAMIDE [Concomitant]
     Active Substance: LOPERAMIDE
  17. LORAZEPAM [Concomitant]
     Active Substance: LORAZEPAM
     Route: 065
  18. MORPHINE [Concomitant]
     Active Substance: MORPHINE
  19. ONDANSETRON [Concomitant]
     Active Substance: ONDANSETRON
  20. POLYETHYLENE GLYCOL [Concomitant]
     Active Substance: POLYETHYLENE GLYCOL
  21. PROCHLORPERAZINE [Concomitant]
     Active Substance: PROCHLORPERAZINE
  22. SENNOSIDES [Concomitant]
     Active Substance: SENNOSIDES
  23. FLUOROURACIL [Suspect]
     Active Substance: FLUOROURACIL
     Indication: Gastric cancer
     Dosage: FREQUENCY: CYCLICAL
  24. LEUCOVORIN [Suspect]
     Active Substance: LEUCOVORIN
     Indication: Gastric cancer
     Dosage: FREQUENCY: CYCLICAL

REACTIONS (1)
  - Febrile neutropenia [Recovered/Resolved]
